FAERS Safety Report 6974361-3 (Version None)
Quarter: 2010Q3

REPORT INFORMATION
  Report Type: 
  Country: None (occurrence: None)
  Receive Date: 20100909
  Receipt Date: 20080630
  Transmission Date: 20110219
  Serious: No
  Sender: FDA-Public Use
  Company Number: US-WYE-H04833408

PATIENT
  Sex: Female

DRUGS (1)
  1. PROTONIX [Suspect]
     Route: 048
     Dates: start: 20080401, end: 20080604

REACTIONS (3)
  - DRUG INEFFECTIVE [None]
  - DYSPHAGIA [None]
  - SENSATION OF FOREIGN BODY [None]
